FAERS Safety Report 8282922-7 (Version None)
Quarter: 2012Q2

REPORT INFORMATION
  Report Type: 
  Country: None (occurrence: None)
  Receive Date: 20120413
  Receipt Date: 20120404
  Transmission Date: 20120825
  Serious: Yes (Other)
  Sender: FDA-Public Use
  Company Number: US-ASTRAZENECA-2012SE17627

PATIENT
  Age: 77 Year
  Sex: Female

DRUGS (4)
  1. TOPROL-XL [Suspect]
     Route: 048
  2. HYDROCODONE [Concomitant]
     Indication: BACK PAIN
     Dosage: AS NEEDED
  3. ACCURETIC [Concomitant]
     Dosage: 20-12.5 1 AM
  4. TYLENOL (CAPLET) [Concomitant]
     Indication: BACK PAIN
     Dosage: AS NEEDED

REACTIONS (4)
  - DRUG INEFFECTIVE [None]
  - TENDON RUPTURE [None]
  - DRUG INTOLERANCE [None]
  - DRUG HYPERSENSITIVITY [None]
